FAERS Safety Report 11228068 (Version 4)
Quarter: 2015Q3

REPORT INFORMATION
  Report Type: Spontaneous
  Country: JP (occurrence: JP)
  Receive Date: 20150630
  Receipt Date: 20150814
  Transmission Date: 20151125
  Serious: Yes (Disabling, Other)
  Sender: FDA-Public Use
  Company Number: JP-PFIZER INC-2015213005

PATIENT
  Age: 77 Year
  Sex: Male
  Weight: 62 kg

DRUGS (2)
  1. VFEND [Suspect]
     Active Substance: VORICONAZOLE
     Dosage: 200 MG, 2X/DAY
     Route: 048
     Dates: start: 20150413
  2. LYRICA [Suspect]
     Active Substance: PREGABALIN
     Indication: NEUROPATHY PERIPHERAL
     Dosage: 25 MG, 2X/DAY
     Route: 048
     Dates: start: 201411, end: 20150623

REACTIONS (5)
  - Dyslalia [Recovering/Resolving]
  - Muscular weakness [Recovering/Resolving]
  - Leukoencephalopathy [Recovering/Resolving]
  - Ataxia [Recovering/Resolving]
  - Acute kidney injury [Not Recovered/Not Resolved]

NARRATIVE: CASE EVENT DATE: 20150611
